FAERS Safety Report 16016383 (Version 1)
Quarter: 2019Q1

REPORT INFORMATION
  Report Type: Spontaneous
  Country: US (occurrence: US)
  Receive Date: 20190228
  Receipt Date: 20190228
  Transmission Date: 20190418
  Serious: No
  Sender: FDA-Public Use
  Company Number: US-JNJFOC-20190138081

PATIENT
  Sex: Male
  Weight: 68.04 kg

DRUGS (3)
  1. TYLENOL [Suspect]
     Active Substance: ACETAMINOPHEN
     Indication: HYPERHIDROSIS
     Route: 065
     Dates: start: 2018
  2. TYLENOL [Suspect]
     Active Substance: ACETAMINOPHEN
     Indication: SEIZURE
     Route: 065
     Dates: start: 2018
  3. TYLENOL [Suspect]
     Active Substance: ACETAMINOPHEN
     Indication: FOOD POISONING
     Route: 065
     Dates: start: 2018

REACTIONS (2)
  - Off label use [Unknown]
  - Product use in unapproved indication [Unknown]

NARRATIVE: CASE EVENT DATE: 2018
